FAERS Safety Report 21886431 (Version 2)
Quarter: 2023Q1

REPORT INFORMATION
  Report Type: Spontaneous
  Country: US (occurrence: US)
  Receive Date: 20230119
  Receipt Date: 20230220
  Transmission Date: 20230418
  Serious: No
  Sender: FDA-Public Use
  Company Number: US-Blueprint Medicines Corporation-728

PATIENT
  Sex: Female

DRUGS (1)
  1. AYVAKIT [Suspect]
     Active Substance: AVAPRITINIB
     Indication: Gastrointestinal stromal tumour
     Route: 065
     Dates: start: 20221221

REACTIONS (7)
  - Myalgia [Unknown]
  - Muscle spasms [Unknown]
  - Swelling face [Recovering/Resolving]
  - Rash [Recovering/Resolving]
  - Vomiting [Unknown]
  - Nausea [Unknown]
  - Pain in extremity [Recovering/Resolving]
